FAERS Safety Report 20622473 (Version 1)
Quarter: 2022Q1

REPORT INFORMATION
  Report Type: Spontaneous
  Country: US (occurrence: US)
  Receive Date: 20220322
  Receipt Date: 20220322
  Transmission Date: 20220423
  Serious: Yes (Other)
  Sender: FDA-Public Use
  Company Number: US-NOVARTISPH-NVSC2022US061736

PATIENT
  Age: 32 Year
  Sex: Male

DRUGS (6)
  1. MYCOPHENOLATE MOFETIL [Suspect]
     Active Substance: MYCOPHENOLATE MOFETIL
     Indication: Neuropathy peripheral
     Dosage: 1000 MG, BID
     Route: 065
  2. METHOTREXATE [Suspect]
     Active Substance: METHOTREXATE
     Indication: Neuropathy peripheral
     Dosage: UNK
     Route: 065
  3. RITUXIMAB [Suspect]
     Active Substance: RITUXIMAB
     Indication: Neuropathy peripheral
     Dosage: 1 G, (1 G (ON DAY 0 AND DAY 14) EVERY 4MONTHS
     Route: 065
  4. AZATHIOPRINE [Suspect]
     Active Substance: AZATHIOPRINE
     Indication: Neuropathy peripheral
     Dosage: UNK
     Route: 065
  5. PREDNISONE [Concomitant]
     Active Substance: PREDNISONE
     Indication: Neuropathy peripheral
     Dosage: 60 MG, QD (DOSE 60 MG/DAY)
     Route: 065
  6. PREDNISONE [Concomitant]
     Active Substance: PREDNISONE
     Dosage: 30 MG, QD (SUBSEQUENTLY TAPERED)
     Route: 065

REACTIONS (3)
  - Neuropathy peripheral [Unknown]
  - Disease progression [Unknown]
  - Product use in unapproved indication [Unknown]
